FAERS Safety Report 4998981-0 (Version None)
Quarter: 2006Q2

REPORT INFORMATION
  Report Type: 
  Country: None (occurrence: None)
  Receive Date: 20060509
  Receipt Date: 20050426
  Transmission Date: 20061013
  Serious: Yes (Other)
  Sender: FDA-Public Use
  Company Number: 2005066899

PATIENT
  Age: 22 Year
  Sex: Female
  Weight: 69.8539 kg

DRUGS (2)
  1. DEPO-PROVERA [Suspect]
     Indication: ILL-DEFINED DISORDER
     Dosage: SEE IMAGE
     Route: 030
     Dates: start: 20020702, end: 20020702
  2. DEPO-PROVERA [Suspect]
     Indication: ILL-DEFINED DISORDER
     Dosage: SEE IMAGE
     Route: 030
     Dates: start: 20050524, end: 20050524

REACTIONS (9)
  - ABDOMINAL DISTENSION [None]
  - CYSTITIS [None]
  - DEPRESSION [None]
  - METRORRHAGIA [None]
  - MOOD SWINGS [None]
  - MUSCLE SPASMS [None]
  - NAUSEA [None]
  - SUICIDAL IDEATION [None]
  - WEIGHT INCREASED [None]
